FAERS Safety Report 21921048 (Version 2)
Quarter: 2023Q1

REPORT INFORMATION
  Report Type: Spontaneous
  Country: US (occurrence: US)
  Receive Date: 20230127
  Receipt Date: 20230201
  Transmission Date: 20230417
  Serious: Yes (Other)
  Sender: FDA-Public Use
  Company Number: US-PFIZER INC-202300038938

PATIENT
  Age: 78 Year
  Sex: Male

DRUGS (1)
  1. METHOTREXATE SODIUM [Suspect]
     Active Substance: METHOTREXATE SODIUM
     Dosage: UNK

REACTIONS (9)
  - Arthritis [Unknown]
  - Drug intolerance [Unknown]
  - Peripheral swelling [Unknown]
  - Asthenia [Unknown]
  - Musculoskeletal stiffness [Unknown]
  - Pain [Unknown]
  - Dry eye [Unknown]
  - Restless legs syndrome [Unknown]
  - Nocturia [Unknown]

NARRATIVE: CASE EVENT DATE: 20160101
